FAERS Safety Report 24794086 (Version 1)
Quarter: 2024Q4

REPORT INFORMATION
  Report Type: Spontaneous
  Country: US (occurrence: US)
  Receive Date: 20241231
  Receipt Date: 20241231
  Transmission Date: 20250115
  Serious: No
  Sender: LEO PHARM
  Company Number: US-LEO Pharma-376399

PATIENT
  Age: 64 Year
  Sex: Male

DRUGS (1)
  1. ADBRY [Suspect]
     Active Substance: TRALOKINUMAB-LDRM
     Indication: Eczema nummular
     Dosage: TREATMENT IS ONGOING
     Dates: start: 202407

REACTIONS (2)
  - Product use in unapproved indication [Unknown]
  - Dermatitis [Unknown]

NARRATIVE: CASE EVENT DATE: 20240701
